FAERS Safety Report 16421088 (Version 1)
Quarter: 2019Q2

REPORT INFORMATION
  Report Type: Spontaneous
  Country: US (occurrence: US)
  Receive Date: 20190612
  Receipt Date: 20190612
  Transmission Date: 20190711
  Serious: Yes (Other)
  Sender: FDA-Public Use
  Company Number: US-TOLMAR, INC.-TOLG20192273

PATIENT
  Age: 36 Year
  Sex: Female

DRUGS (2)
  1. LEVETIRACETAM. [Suspect]
     Active Substance: LEVETIRACETAM
     Indication: SEIZURE
     Dosage: UNKNOWN
     Route: 065
  2. LAMOTRIGINE. [Suspect]
     Active Substance: LAMOTRIGINE
     Indication: SEIZURE
     Dosage: UNKNOWN
     Route: 065

REACTIONS (21)
  - Abdominal pain upper [Recovered/Resolved]
  - Rash erythematous [Recovered/Resolved]
  - Tonsillar exudate [Recovered/Resolved]
  - Transaminases increased [Recovered/Resolved]
  - Rash macular [Recovered/Resolved]
  - Face oedema [Recovered/Resolved]
  - Tonsillar hypertrophy [Recovered/Resolved]
  - Salivary gland enlargement [Recovered/Resolved]
  - Murphy^s sign positive [Recovered/Resolved]
  - Drug reaction with eosinophilia and systemic symptoms [Recovered/Resolved]
  - Pyrexia [Recovered/Resolved]
  - Pharyngeal erythema [Recovered/Resolved]
  - Drug ineffective [Unknown]
  - Cholecystitis [Recovered/Resolved]
  - Peripheral swelling [Recovered/Resolved]
  - Rash [Recovered/Resolved]
  - Lip oedema [Recovered/Resolved]
  - Lymphadenopathy [Recovered/Resolved]
  - Pleural effusion [Recovered/Resolved]
  - Skin exfoliation [Recovered/Resolved]
  - Perivascular dermatitis [Recovered/Resolved]
